FAERS Safety Report 6820810-0 (Version None)
Quarter: 2010Q3

REPORT INFORMATION
  Report Type: 
  Country: None (occurrence: None)
  Receive Date: 20100707
  Receipt Date: 20040323
  Transmission Date: 20110219
  Serious: No
  Sender: FDA-Public Use
  Company Number: US-PFIZER INC-2004020002

PATIENT
  Sex: Female

DRUGS (1)
  1. ZOLOFT [Suspect]

REACTIONS (5)
  - COUGH [None]
  - DIARRHOEA [None]
  - EYE PRURITUS [None]
  - TIC [None]
  - WEIGHT INCREASED [None]
